FAERS Safety Report 9826806 (Version 1)
Quarter: 2013Q4

REPORT INFORMATION
  Report Type: Spontaneous
  Country: US (occurrence: None)
  Receive Date: 20131112
  Receipt Date: 20131112
  Transmission Date: 20140711
  Serious: Yes (Other)
  Sender: FDA-Public Use
  Company Number: E2B_00001211

PATIENT
  Age: 93 Year
  Sex: Female

DRUGS (2)
  1. LISINOPRIL [Suspect]
     Indication: HYPERTENSION
     Dosage: 5 MG (5 MG, 1 IN 1 D), PER ORAL
     Route: 048
     Dates: start: 201307
  2. SYNTHROID (LEVOTHYROXINE) [Concomitant]

REACTIONS (3)
  - Blood pressure increased [None]
  - Flushing [None]
  - Drug ineffective [None]
